FAERS Safety Report 13566267 (Version 1)
Quarter: 2017Q2

REPORT INFORMATION
  Report Type: Spontaneous
  Country: US (occurrence: US)
  Receive Date: 20170519
  Receipt Date: 20170519
  Transmission Date: 20170830
  Serious: Yes (Other)
  Sender: FDA-Public Use
  Company Number: None

PATIENT
  Sex: Female

DRUGS (1)
  1. IBRANCE [Suspect]
     Active Substance: PALBOCICLIB
     Indication: NEOPLASM MALIGNANT
     Dosage: 100 MG DAILY X 21 DAYS, OFF FOR 7 DAYS PO
     Route: 048
     Dates: start: 20161020, end: 201705

REACTIONS (2)
  - Therapy non-responder [None]
  - Malignant neoplasm progression [None]
